FAERS Safety Report 5506508-X (Version None)
Quarter: 2007Q4

REPORT INFORMATION
  Report Type: 
  Country: None (occurrence: None)
  Receive Date: 20071105
  Receipt Date: 20071031
  Transmission Date: 20080405
  Serious: Yes (Death, Hospitalization)
  Sender: FDA-Public Use
  Company Number: A0668712B

PATIENT
  Age: 72 Year
  Sex: Female
  Weight: 41.8 kg

DRUGS (2)
  1. TOPOTECAN [Suspect]
     Dosage: 4MGM2 CYCLIC
     Route: 042
     Dates: start: 20070425
  2. CARBOPLATIN [Suspect]
     Route: 042
     Dates: start: 20070425

REACTIONS (5)
  - ANAEMIA [None]
  - ASTHENIA [None]
  - CARDIO-RESPIRATORY ARREST [None]
  - DYSPNOEA [None]
  - TACHYCARDIA [None]
